FAERS Safety Report 18419944 (Version 1)
Quarter: 2020Q4

REPORT INFORMATION
  Report Type: Spontaneous
  Country: US (occurrence: US)
  Receive Date: 20201023
  Receipt Date: 20201023
  Transmission Date: 20210114
  Serious: Yes (Hospitalization, Other)
  Sender: FDA-Public Use
  Company Number: US-VIIV HEALTHCARE LIMITED-US2020AMR210934

PATIENT
  Sex: Male

DRUGS (1)
  1. DOVATO [Suspect]
     Active Substance: DOLUTEGRAVIR SODIUM\LAMIVUDINE
     Indication: HIV INFECTION
     Dosage: 1 DF, QD (50MG/300MG)
     Dates: start: 202006

REACTIONS (5)
  - Renal impairment [Unknown]
  - Product dose omission issue [Unknown]
  - Loss of consciousness [Unknown]
  - Dizziness [Unknown]
  - Hypertension [Unknown]

NARRATIVE: CASE EVENT DATE: 2020
